FAERS Safety Report 5688723-8 (Version None)
Quarter: 2008Q1

REPORT INFORMATION
  Report Type: 
  Country: None (occurrence: None)
  Receive Date: 20080331
  Receipt Date: 20080325
  Transmission Date: 20080703
  Serious: Yes (Other)
  Sender: FDA-Public Use
  Company Number: BE-MERCK-0802BEL00007

PATIENT
  Age: 37 Year
  Sex: Female
  Weight: 62 kg

DRUGS (3)
  1. PROPECIA [Suspect]
     Indication: ALOPECIA
     Route: 048
     Dates: end: 20080201
  2. PROPECIA [Suspect]
     Route: 048
     Dates: start: 20080229
  3. DROSPIRENONE AND ETHINYL ESTRADIOL [Concomitant]
     Indication: ALOPECIA
     Route: 048

REACTIONS (4)
  - BLOOD CREATININE INCREASED [None]
  - DRUG ADMINISTRATION ERROR [None]
  - FATIGUE [None]
  - GLOMERULAR FILTRATION RATE DECREASED [None]
